FAERS Safety Report 19307386 (Version 1)
Quarter: 2021Q2

REPORT INFORMATION
  Report Type: Spontaneous
  Country: QA (occurrence: QA)
  Receive Date: 20210526
  Receipt Date: 20210526
  Transmission Date: 20210717
  Serious: Yes (Death, Hospitalization, Other)
  Sender: FDA-Public Use
  Company Number: QA-AMGEN-QATSP2021077786

PATIENT
  Age: 55 Year
  Sex: Female

DRUGS (3)
  1. TEMOZOLOMIDE. [Concomitant]
     Active Substance: TEMOZOLOMIDE
     Dosage: 75 MILLIGRAM/SQ. METER
     Route: 065
  2. FILGRASTIM [Suspect]
     Active Substance: FILGRASTIM
     Indication: PANCYTOPENIA
     Dosage: 300 MICROGRAM, QD
     Route: 058
  3. FILGRASTIM [Suspect]
     Active Substance: FILGRASTIM
     Indication: OFF LABEL USE

REACTIONS (19)
  - Septic shock [Unknown]
  - Achromobacter infection [Unknown]
  - Hypotension [Unknown]
  - Bone marrow failure [Unknown]
  - Swelling face [Unknown]
  - Sinusitis [Unknown]
  - Confusional state [Unknown]
  - Pancytopenia [Fatal]
  - Febrile neutropenia [Unknown]
  - Cardiac arrest [Unknown]
  - Sepsis [Fatal]
  - Enterococcal bacteraemia [Unknown]
  - Drug ineffective for unapproved indication [Unknown]
  - Off label use [Unknown]
  - Stenotrophomonas infection [Unknown]
  - Aspergillus infection [Unknown]
  - Cellulitis [Unknown]
  - Aplastic anaemia [Unknown]
  - Pseudomonas infection [Unknown]
